FAERS Safety Report 14748773 (Version 2)
Quarter: 2018Q3

REPORT INFORMATION
  Report Type: Spontaneous
  Country: US (occurrence: US)
  Receive Date: 20180411
  Receipt Date: 20180928
  Transmission Date: 20181010
  Serious: No
  Sender: FDA-Public Use
  Company Number: US-AMGEN-USASP2017179710

PATIENT
  Age: 62 Year
  Sex: Female
  Weight: 78.5 kg

DRUGS (1)
  1. PROLIA [Suspect]
     Active Substance: DENOSUMAB
     Indication: OSTEOPOROSIS
     Dosage: 60 MG, UNK
     Route: 065
     Dates: start: 20170505

REACTIONS (2)
  - Accidental exposure to product [Unknown]
  - Underdose [Unknown]

NARRATIVE: CASE EVENT DATE: 20171115
